FAERS Safety Report 23371016 (Version 1)
Quarter: 2024Q1

REPORT INFORMATION
  Report Type: Spontaneous
  Country: US (occurrence: US)
  Receive Date: 20240105
  Receipt Date: 20240105
  Transmission Date: 20240409
  Serious: No
  Sender: FDA-Public Use
  Company Number: CID000000000042955

PATIENT
  Age: 36 Year

DRUGS (1)
  1. UZEDY [Suspect]
     Active Substance: RISPERIDONE
     Indication: Bipolar I disorder
     Dosage: 125/0.35 MG/ML
     Route: 065

REACTIONS (1)
  - Intercepted product prescribing error [Unknown]

NARRATIVE: CASE EVENT DATE: 20231201
